FAERS Safety Report 6000073-9 (Version None)
Quarter: 2008Q4

REPORT INFORMATION
  Report Type: 
  Country: None (occurrence: None)
  Receive Date: 20081215
  Receipt Date: 20081204
  Transmission Date: 20090506
  Serious: Yes (Hospitalization)
  Sender: FDA-Public Use
  Company Number: B0549053A

PATIENT
  Age: 81 Year
  Sex: Female

DRUGS (9)
  1. ARIXTRA [Suspect]
     Dosage: 7.5MG PER DAY
     Route: 058
     Dates: start: 20081020, end: 20081104
  2. DEPAMIDE [Concomitant]
     Indication: BIPOLAR DISORDER
     Dosage: 600MG TWICE PER DAY
     Route: 048
  3. IXPRIM [Concomitant]
     Indication: PAIN
     Dosage: 3TAB PER DAY
     Route: 048
  4. LEVOTHYROX [Concomitant]
     Dosage: 125MCG PER DAY
     Route: 048
  5. LOXAPINE HCL [Concomitant]
     Dosage: 25MG ALTERNATE DAYS
     Route: 048
  6. SEROPLEX [Concomitant]
     Dosage: 20MG PER DAY
     Route: 048
  7. ZOLPIDEM [Concomitant]
     Indication: INSOMNIA
     Dosage: 10MG PER DAY
     Route: 048
  8. PRAZEPAM [Concomitant]
     Indication: ANXIETY
     Dosage: 10MG THREE TIMES PER DAY
     Route: 048
  9. ALEPSAL [Concomitant]
     Indication: EPILEPSY
     Dosage: 50MG PER DAY
     Route: 048

REACTIONS (9)
  - ANAEMIA [None]
  - ASTHENIA [None]
  - CONFUSIONAL STATE [None]
  - DISORIENTATION [None]
  - DYSPNOEA [None]
  - HAEMATOMA [None]
  - PAIN IN EXTREMITY [None]
  - PALLOR [None]
  - PHOTOPHOBIA [None]
